FAERS Safety Report 5808837-9 (Version None)
Quarter: 2008Q3

REPORT INFORMATION
  Report Type: 
  Country: None (occurrence: None)
  Receive Date: 20080710
  Receipt Date: 20080710
  Transmission Date: 20090109
  Serious: Yes (Hospitalization)
  Sender: FDA-Public Use
  Company Number: None

PATIENT
  Age: 74 Year
  Sex: Male

DRUGS (1)
  1. ETODOLAC [Suspect]
     Dosage: 200 MG BID PO
     Route: 048
     Dates: start: 20070718, end: 20080407

REACTIONS (2)
  - GASTRITIS [None]
  - GASTROINTESTINAL HAEMORRHAGE [None]
